FAERS Safety Report 7332107-3 (Version None)
Quarter: 2011Q1

REPORT INFORMATION
  Report Type: 
  Country: None (occurrence: None)
  Receive Date: 20110222
  Receipt Date: 20110208
  Transmission Date: 20110831
  Serious: Yes (Other)
  Sender: FDA-Public Use
  Company Number: 1000018876

PATIENT
  Age: 47 Year
  Sex: Male

DRUGS (2)
  1. ESCITALOPRAM OXALATE [Suspect]
     Dosage: 5 MG (5 MG,1 IN 1 D),ORAL
     Route: 048
  2. ESCITALOPRAM OXALATE [Suspect]
     Dosage: 10 MG (10 MG,1 IN 1 D),ORAL
     Route: 048

REACTIONS (3)
  - ABDOMINAL PAIN [None]
  - MUSCLE TIGHTNESS [None]
  - FEELING ABNORMAL [None]
